FAERS Safety Report 5874472-X (Version None)
Quarter: 2008Q3

REPORT INFORMATION
  Report Type: 
  Country: None (occurrence: None)
  Receive Date: 20080908
  Receipt Date: 20080827
  Transmission Date: 20090109
  Serious: Yes (Other)
  Sender: FDA-Public Use
  Company Number: CO-PFIZER INC-2008073960

PATIENT
  Sex: Female

DRUGS (1)
  1. CHANTIX [Suspect]
     Indication: EX-TOBACCO USER
     Route: 048
     Dates: start: 20080522

REACTIONS (5)
  - BASEDOW'S DISEASE [None]
  - EYE IRRITATION [None]
  - EYELID OEDEMA [None]
  - OCULAR HYPERAEMIA [None]
  - SWELLING FACE [None]
